FAERS Safety Report 7325061-1 (Version None)
Quarter: 2011Q1

REPORT INFORMATION
  Report Type: 
  Country: None (occurrence: None)
  Receive Date: 20110302
  Receipt Date: 20110217
  Transmission Date: 20110831
  Serious: Yes (Other)
  Sender: FDA-Public Use
  Company Number: US-RB-021357-11

PATIENT
  Age: 32 Year
  Sex: Female

DRUGS (1)
  1. MUCINEX DM [Suspect]
     Indication: PRODUCT USED FOR UNKNOWN INDICATION
     Route: 048

REACTIONS (14)
  - HYPERVENTILATION [None]
  - ERYTHEMA [None]
  - HYPERHIDROSIS [None]
  - DIZZINESS [None]
  - CRYING [None]
  - HEART RATE INCREASED [None]
  - FEELING DRUNK [None]
  - HALLUCINATION [None]
  - SOMNOLENCE [None]
  - INITIAL INSOMNIA [None]
  - CONDITION AGGRAVATED [None]
  - DRY MOUTH [None]
  - MOOD SWINGS [None]
  - VISION BLURRED [None]
